FAERS Safety Report 24223071 (Version 1)
Quarter: 2024Q3

REPORT INFORMATION
  Report Type: Spontaneous
  Country: US (occurrence: US)
  Receive Date: 20240819
  Receipt Date: 20240819
  Transmission Date: 20241017
  Serious: No
  Sender: BRISTOL MYERS SQUIBB
  Company Number: US-BRISTOL-MYERS SQUIBB COMPANY-2024-130087

PATIENT
  Age: 75 Year
  Sex: Female

DRUGS (2)
  1. SOTYKTU [Suspect]
     Active Substance: DEUCRAVACITINIB
     Indication: Psoriasis
     Route: 048
  2. SOTYKTU [Suspect]
     Active Substance: DEUCRAVACITINIB
     Indication: Neurodermatitis

REACTIONS (2)
  - Dermatitis acneiform [Unknown]
  - Rash papular [Unknown]
